FAERS Safety Report 9453053 (Version 1)
Quarter: 2013Q3

REPORT INFORMATION
  Report Type: Spontaneous
  Country: US (occurrence: US)
  Receive Date: 20130812
  Receipt Date: 20130812
  Transmission Date: 20140515
  Serious: No
  Sender: FDA-Public Use
  Company Number: US-ROXANE LABORATORIES, INC.-2013-RO-01332RO

PATIENT
  Sex: Female

DRUGS (2)
  1. LEVETIRACETAM [Suspect]
     Indication: NEURALGIA
  2. LEVETIRACETAM [Suspect]

REACTIONS (2)
  - Feeling abnormal [Unknown]
  - Pruritus [Unknown]
